FAERS Safety Report 25283720 (Version 2)
Quarter: 2025Q3

REPORT INFORMATION
  Report Type: Spontaneous
  Country: US (occurrence: US)
  Receive Date: 20250508
  Receipt Date: 20250810
  Transmission Date: 20251021
  Serious: No
  Sender: ALEXION PHARMACEUTICALS
  Company Number: US-AstraZeneca-CH-00860359A

PATIENT
  Sex: Male

DRUGS (1)
  1. BYETTA [Suspect]
     Active Substance: EXENATIDE
     Indication: Diabetes mellitus
     Dosage: 10 MICROGRAM, AC?BEFORE MEALS
     Route: 065
     Dates: end: 202503

REACTIONS (2)
  - Weight decreased [Unknown]
  - Blood glucose increased [Unknown]
